FAERS Safety Report 17945143 (Version 3)
Quarter: 2020Q3

REPORT INFORMATION
  Report Type: Spontaneous
  Country: CN (occurrence: CN)
  Receive Date: 20200625
  Receipt Date: 20200706
  Transmission Date: 20201103
  Serious: Yes (Death, Other)
  Sender: FDA-Public Use
  Company Number: CN-ASTRAZENECA-2020SE81097

PATIENT
  Age: 29842 Day
  Sex: Male

DRUGS (1)
  1. IRESSA [Suspect]
     Active Substance: GEFITINIB
     Indication: NON-SMALL CELL LUNG CANCER
     Route: 048
     Dates: start: 20200617

REACTIONS (6)
  - Multiple organ dysfunction syndrome [Not Recovered/Not Resolved]
  - Hyperhidrosis [Not Recovered/Not Resolved]
  - Decreased appetite [Not Recovered/Not Resolved]
  - Death [Fatal]
  - Dyspnoea [Not Recovered/Not Resolved]
  - Discomfort [Unknown]

NARRATIVE: CASE EVENT DATE: 20200619
